FAERS Safety Report 10247334 (Version 1)
Quarter: 2014Q1

REPORT INFORMATION
  Report Type: Spontaneous
  Country: US (occurrence: None)
  Receive Date: 20140306
  Receipt Date: 20140306
  Transmission Date: 20141002
  Serious: Yes (Hospitalization, Other)
  Sender: FDA-Public Use
  Company Number: 163-21880-13031879

PATIENT
  Age: 64 Year
  Sex: Male
  Weight: 94.35 kg

DRUGS (11)
  1. REVLIMID (LENALIDOMIDE) (25 MILLIGRAM, CAPSULES) [Suspect]
     Indication: PLASMA CELL MYELOMA
     Route: 048
     Dates: start: 20070723, end: 2010
  2. ASA (ACETYLSALICYLIC ACID) (25 MILLIGRAM, CAPSULES) [Concomitant]
  3. CALCIUM (CALCIUM) (UNKNOWN) [Concomitant]
  4. COUMADIN (WARFARIN SODIUM) (TABLETS) [Concomitant]
  5. DEXAMETHASONE (DEXAMETHASONE) (UNKNOWN) [Concomitant]
  6. FISH OIL (FISH OIL) (UNKNOWN) [Concomitant]
  7. MAGNESIUM (MAGNESIUM) (TABLETS) [Concomitant]
  8. MULTIVITAMINS (MULTIVITAMINS) (CAPSULES) [Concomitant]
  9. POTASSIUM BICARBONATE (POTASSIUM BICARBONATE) (UNKNOWN) [Concomitant]
  10. SPIRULINA (SPIRULINA) (TABLETS) [Concomitant]
  11. PREDNISONE (PREDNISONE) (TABLETS) [Concomitant]

REACTIONS (2)
  - Pulmonary embolism [None]
  - Deep vein thrombosis [None]
